FAERS Safety Report 20848030 (Version 3)
Quarter: 2025Q4

REPORT INFORMATION
  Report Type: Other
  Country: EU (occurrence: EU)
  Receive Date: 20220519
  Receipt Date: 20251010
  Transmission Date: 20260118
  Serious: Yes (Other)
  Sender: BIOCON
  Company Number: EU-ROCHE-3081492

PATIENT

DRUGS (13)
  1. TRASTUZUMAB [Suspect]
     Active Substance: TRASTUZUMAB
     Indication: Breast cancer
     Dosage: PERTUZUMAB SYSTEMIC THERAPY WAS INITIATED IN COMBINATION WITH TRASTUZUMAB AND DOCETAXEL FOR 5 MON
     Route: 065
  2. TRASTUZUMAB [Suspect]
     Active Substance: TRASTUZUMAB
     Indication: Metastases to liver
  3. DOCETAXEL [Suspect]
     Active Substance: DOCETAXEL
     Indication: Breast cancer
     Dosage: PERTUZUMAB SYSTEMIC THERAPY WAS INITIATED IN COMBINATION WITH TRASTUZUMAB AND DOCETAXEL FOR 5 MON
     Route: 065
  4. DOCETAXEL [Suspect]
     Active Substance: DOCETAXEL
     Indication: Invasive breast carcinoma
  5. DOCETAXEL [Suspect]
     Active Substance: DOCETAXEL
     Indication: Metastases to liver
  6. LETROZOLE [Suspect]
     Active Substance: LETROZOLE
     Indication: Hormone therapy
     Dosage: UNK
  7. EPIRUBICIN [Suspect]
     Active Substance: EPIRUBICIN
     Indication: Neoadjuvant therapy
     Dosage: UNK
     Route: 065
  8. EPIRUBICIN [Suspect]
     Active Substance: EPIRUBICIN
     Indication: Chemotherapy
     Dosage: UNK, 90 MG/M2
     Route: 065
  9. CARBOPLATIN [Suspect]
     Active Substance: CARBOPLATIN
     Indication: Invasive breast carcinoma
     Dosage: UNK
     Route: 065
  10. PERTUZUMAB [Suspect]
     Active Substance: PERTUZUMAB
     Indication: Breast cancer
     Dosage: PERTUZUMAB SYSTEMIC THERAPY WAS INITIATED IN COMBINATION WITH TRASTUZUMAB AND DOCETAXEL FOR 5 MON
     Route: 065
  11. PERTUZUMAB [Suspect]
     Active Substance: PERTUZUMAB
     Indication: Metastases to liver
     Dosage: UNK
     Route: 062
  12. CYCLOPHOSPHAMIDE [Suspect]
     Active Substance: CYCLOPHOSPHAMIDE
     Indication: Neoadjuvant therapy
     Dosage: 600 MILLIGRAM/SQ. METER
     Route: 065
  13. CYCLOPHOSPHAMIDE [Suspect]
     Active Substance: CYCLOPHOSPHAMIDE
     Indication: Chemotherapy
     Dosage: UNK
     Route: 065

REACTIONS (8)
  - Disease progression [Unknown]
  - General physical condition abnormal [Unknown]
  - General physical health deterioration [Recovering/Resolving]
  - Pneumothorax [Recovering/Resolving]
  - Dyspnoea at rest [Unknown]
  - Fatigue [Unknown]
  - Pleural effusion [Recovering/Resolving]
  - Drug ineffective [Unknown]
